FAERS Safety Report 5626996-8 (Version None)
Quarter: 2008Q1

REPORT INFORMATION
  Report Type: 
  Country: None (occurrence: None)
  Receive Date: 20080122
  Receipt Date: 20070216
  Transmission Date: 20080703
  Serious: Yes (Other)
  Sender: FDA-Public Use
  Company Number: 2007-154693-NL

PATIENT
  Age: 41 Year
  Sex: Female

DRUGS (1)
  1. CYCLESSA [Suspect]
     Dosage: ORAL
     Route: 048
     Dates: start: 20060101

REACTIONS (1)
  - PULMONARY EMBOLISM [None]
